FAERS Safety Report 4740966-3 (Version None)
Quarter: 2005Q3

REPORT INFORMATION
  Report Type: 
  Country: None (occurrence: None)
  Receive Date: 20050810
  Receipt Date: 20050524
  Transmission Date: 20060218
  Serious: No
  Sender: FDA-Public Use
  Company Number: US-GLAXOSMITHKLINE-A0559934A

PATIENT
  Age: 60 Year
  Sex: Female

DRUGS (3)
  1. PAROXETINE HYDROCHLORIDE [Suspect]
     Indication: DEPRESSION
     Dosage: 10MG TWICE PER DAY
     Route: 048
     Dates: start: 20050420
  2. DICLOXACILLIN [Concomitant]
  3. ANTIBIOTIC [Concomitant]
     Indication: RADIATION INJURY
     Route: 065

REACTIONS (8)
  - CONFUSIONAL STATE [None]
  - CRYING [None]
  - INSOMNIA [None]
  - MYALGIA [None]
  - NERVOUSNESS [None]
  - NIGHTMARE [None]
  - THINKING ABNORMAL [None]
  - TREMOR [None]
